FAERS Safety Report 11429255 (Version 1)
Quarter: 2015Q3

REPORT INFORMATION
  Report Type: Spontaneous
  Country: US (occurrence: None)
  Receive Date: 20150827
  Receipt Date: 20150827
  Transmission Date: 20151125
  Serious: Yes (Hospitalization)
  Sender: FDA-Public Use
  Company Number: None

PATIENT
  Age: 77 Year
  Sex: Male
  Weight: 65.8 kg

DRUGS (1)
  1. CAPECITABINE. [Suspect]
     Active Substance: CAPECITABINE
     Indication: PANCREATIC CARCINOMA
     Dosage: 3 PILLS
     Route: 048
     Dates: start: 20150810, end: 20150818

REACTIONS (3)
  - Device occlusion [None]
  - Purulence [None]
  - Cholangitis [None]

NARRATIVE: CASE EVENT DATE: 20150819
